FAERS Safety Report 4669527-1 (Version None)
Quarter: 2005Q2

REPORT INFORMATION
  Report Type: 
  Country: None (occurrence: None)
  Receive Date: 20050523
  Receipt Date: 20050512
  Transmission Date: 20051028
  Serious: Yes (Other)
  Sender: FDA-Public Use
  Company Number: GR-ROCHE-404738

PATIENT
  Age: 19 Year
  Sex: Male
  Weight: 80 kg

DRUGS (2)
  1. ROACCUTAN [Suspect]
     Route: 048
     Dates: start: 20041110, end: 20041130
  2. ROACCUTAN [Suspect]
     Route: 048
     Dates: start: 20041130, end: 20050308

REACTIONS (2)
  - ESCHERICHIA INFECTION [None]
  - HYPERKERATOSIS [None]
